FAERS Safety Report 7277944-9 (Version None)
Quarter: 2011Q1

REPORT INFORMATION
  Report Type: 
  Country: None (occurrence: None)
  Receive Date: 20110207
  Receipt Date: 20110128
  Transmission Date: 20110831
  Serious: Yes (Other)
  Sender: FDA-Public Use
  Company Number: US-JNJFOC-20100805758

PATIENT
  Sex: Female
  Weight: 92.99 kg

DRUGS (2)
  1. LEVAQUIN [Suspect]
     Indication: SINUSITIS
     Route: 048
  2. LEVAQUIN [Suspect]
     Indication: BRONCHITIS
     Route: 048

REACTIONS (5)
  - ROTATOR CUFF SYNDROME [None]
  - NECK PAIN [None]
  - CHONDROPATHY [None]
  - TENDON RUPTURE [None]
  - PAIN IN EXTREMITY [None]
